FAERS Safety Report 25986523 (Version 2)
Quarter: 2025Q4

REPORT INFORMATION
  Report Type: Spontaneous
  Country: US (occurrence: US)
  Receive Date: 20251101
  Receipt Date: 20251113
  Transmission Date: 20260118
  Serious: Yes (Other)
  Sender: ARDELYX
  Company Number: US-ARDELYX-2025ARDX007983

PATIENT
  Age: 36 Year
  Sex: Female

DRUGS (2)
  1. IBSRELA [Suspect]
     Active Substance: TENAPANOR HYDROCHLORIDE
     Indication: Constipation
     Dosage: 50 MG, BID
     Route: 048
     Dates: start: 20251008
  2. MIRALAX [Suspect]
     Active Substance: POLYETHYLENE GLYCOL 3350
     Indication: Constipation
     Dosage: UNK
     Route: 065
     Dates: start: 202510

REACTIONS (16)
  - Diarrhoea [Unknown]
  - Large intestinal obstruction [Unknown]
  - Enterocolitis [Recovering/Resolving]
  - Vomiting [Unknown]
  - Pain [Unknown]
  - Dizziness [Unknown]
  - Myalgia [Unknown]
  - Pyrexia [Unknown]
  - Decreased appetite [Unknown]
  - Abdominal pain upper [Unknown]
  - Tenderness [Unknown]
  - Malaise [Unknown]
  - Dehydration [Recovered/Resolved]
  - Product use in unapproved indication [Unknown]
  - Treatment noncompliance [Unknown]
  - Endoscopy [Unknown]

NARRATIVE: CASE EVENT DATE: 20251001
